FAERS Safety Report 7217405-6 (Version None)
Quarter: 2010Q4

REPORT INFORMATION
  Report Type: 
  Country: None (occurrence: None)
  Receive Date: 20101230
  Receipt Date: 20101213
  Transmission Date: 20110411
  Serious: No
  Sender: FDA-Public Use
  Company Number: 2010-01046

PATIENT
  Age: 54 Year
  Sex: Female
  Weight: 83.9154 kg

DRUGS (3)
  1. ZICAM COLD REMEDY ORAL MIST [Suspect]
     Dosage: 2 DOSES
     Dates: start: 20101210, end: 20101210
  2. TOPAMAX [Concomitant]
  3. SYMBICORT [Concomitant]

REACTIONS (1)
  - AGEUSIA [None]
